FAERS Safety Report 7878682-1 (Version None)
Quarter: 2011Q4

REPORT INFORMATION
  Report Type: 
  Country: None (occurrence: None)
  Receive Date: 20111018
  Receipt Date: 20110310
  Transmission Date: 20120403
  Serious: Yes (Hospitalization)
  Sender: FDA-Public Use
  Company Number: 2011P1004865

PATIENT
  Age: 59 Year
  Sex: Female
  Weight: 63.5036 kg

DRUGS (12)
  1. CLONIDINE [Concomitant]
  2. LIPITOR [Concomitant]
  3. LORTAB [Concomitant]
  4. FLEXERIL [Concomitant]
  5. PLAVIX [Concomitant]
  6. FENTANYL [Suspect]
     Indication: BACK PAIN
     Dosage: 1 PATCH; Q3D;TDER
     Route: 062
     Dates: start: 20100901
  7. PERIACTIN [Concomitant]
  8. RAMIPRIL [Concomitant]
  9. PREVACID [Concomitant]
  10. DIOVAN [Concomitant]
  11. BYSTOLIC [Concomitant]
  12. CELEBREX [Concomitant]

REACTIONS (18)
  - DYSPNOEA [None]
  - VOMITING [None]
  - CHEST PAIN [None]
  - BLOOD PRESSURE INCREASED [None]
  - DIZZINESS [None]
  - WRONG TECHNIQUE IN DRUG USAGE PROCESS [None]
  - HYPOPHAGIA [None]
  - DISCOMFORT [None]
  - DRUG WITHDRAWAL SYNDROME [None]
  - FEELING HOT [None]
  - ANXIETY [None]
  - INSOMNIA [None]
  - BURNING SENSATION [None]
  - NAUSEA [None]
  - ACCIDENTAL EXPOSURE [None]
  - HEART RATE INCREASED [None]
  - PRODUCT ADHESION ISSUE [None]
  - HYPERHIDROSIS [None]
